FAERS Safety Report 17112684 (Version 1)
Quarter: 2019Q4

REPORT INFORMATION
  Report Type: Spontaneous
  Country: US (occurrence: US)
  Receive Date: 20191204
  Receipt Date: 20191204
  Transmission Date: 20200122
  Serious: No
  Sender: FDA-Public Use
  Company Number: US-PTC THERAPEUTICS, INC.-US-2019PTC001355

PATIENT
  Age: 10 Year
  Sex: Male

DRUGS (1)
  1. EMFLAZA [Suspect]
     Active Substance: DEFLAZACORT
     Indication: MUSCULAR DYSTROPHY
     Dosage: 1.2 ML, QD
     Route: 048

REACTIONS (4)
  - Product dose omission [Unknown]
  - Prescription drug used without a prescription [Unknown]
  - Rash [Unknown]
  - Headache [Unknown]

NARRATIVE: CASE EVENT DATE: 201909
